FAERS Safety Report 12661714 (Version 2)
Quarter: 2016Q3

REPORT INFORMATION
  Report Type: Report from Study
  Country: DE (occurrence: DE)
  Receive Date: 20160817
  Receipt Date: 20160830
  Transmission Date: 20161109
  Serious: Yes (Hospitalization, Other)
  Sender: FDA-Public Use
  Company Number: PHHY2014DE129839

PATIENT
  Sex: Male
  Weight: 105 kg

DRUGS (10)
  1. KYTTA-SALBE [Suspect]
     Active Substance: HERBALS
     Indication: ARTHRALGIA
     Dosage: UNK
     Route: 061
     Dates: end: 20140508
  2. FORMOTOP [Concomitant]
     Active Substance: FORMOTEROL FUMARATE
     Indication: CHRONIC OBSTRUCTIVE PULMONARY DISEASE
     Dosage: 2 DF (PUFF) (6-12 UG), QD
     Route: 055
     Dates: start: 20120301
  3. MARCUMAR [Concomitant]
     Active Substance: PHENPROCOUMON
     Indication: ATRIAL FIBRILLATION
     Dosage: UNK (ACCORDING TO BLOOD VALUE)
     Route: 065
     Dates: start: 20110401
  4. CO DIOVAN [Concomitant]
     Active Substance: HYDROCHLOROTHIAZIDE\VALSARTAN
     Indication: HYPERTENSION
     Dosage: 160 MG, QD
     Route: 065
     Dates: start: 20110401
  5. AMLODIPINE [Concomitant]
     Active Substance: AMLODIPINE BESYLATE
     Indication: HYPERTENSION
     Dosage: 10 MG, QD
     Route: 065
     Dates: start: 20110401
  6. SEEBRI BREEZHALER [Suspect]
     Active Substance: GLYCOPYRROLATE
     Indication: CHRONIC OBSTRUCTIVE PULMONARY DISEASE
     Dosage: 44 UG, QD
     Route: 055
     Dates: start: 20130102, end: 20140930
  7. NOVODIGAL [Concomitant]
     Active Substance: .BETA.-ACETYLDIGOXIN
     Indication: ATRIAL FIBRILLATION
     Dosage: 0.1 MG, QD
     Route: 065
     Dates: start: 20110401
  8. NOVODIGAL [Concomitant]
     Active Substance: .BETA.-ACETYLDIGOXIN
     Indication: HYPERTENSION
  9. VELMETIA [Concomitant]
     Active Substance: METFORMIN\SITAGLIPTIN
     Indication: DIABETES MELLITUS
     Dosage: 1 DF (50/1000), UNK (ACCORDING TO BLOOD VALUE)
     Route: 065
     Dates: start: 20110401
  10. BISOPROLOL [Concomitant]
     Active Substance: BISOPROLOL
     Indication: HYPERTENSION
     Dosage: 5 MG, QD
     Route: 065
     Dates: start: 20110401

REACTIONS (7)
  - Dermatitis contact [Recovered/Resolved]
  - Pruritus [Recovered/Resolved]
  - Urticaria [Recovered/Resolved]
  - Urticaria [Unknown]
  - Erythema [Recovered/Resolved]
  - Erysipelas [Unknown]
  - Arthralgia [Unknown]

NARRATIVE: CASE EVENT DATE: 20140508
